FAERS Safety Report 25251092 (Version 1)
Quarter: 2025Q2

REPORT INFORMATION
  Report Type: Spontaneous
  Country: US (occurrence: None)
  Receive Date: 20250429
  Receipt Date: 20250429
  Transmission Date: 20250717
  Serious: No
  Sender: INCYTE
  Company Number: US-INCYTE CORPORATION-2025IN004302

PATIENT
  Age: 80 Year

DRUGS (4)
  1. JAKAFI [Suspect]
     Active Substance: RUXOLITINIB
     Indication: Mastocytic leukaemia
     Dosage: 5 MILLIGRAM, BID
  2. JAKAFI [Suspect]
     Active Substance: RUXOLITINIB
     Indication: Dermatitis atopic
  3. JAKAFI [Suspect]
     Active Substance: RUXOLITINIB
     Indication: Osteoarthritis
  4. JAKAFI [Suspect]
     Active Substance: RUXOLITINIB
     Indication: Oedema

REACTIONS (1)
  - Off label use [Unknown]
